FAERS Safety Report 4656230-7 (Version None)
Quarter: 2005Q2

REPORT INFORMATION
  Report Type: 
  Country: None (occurrence: None)
  Receive Date: 20050509
  Receipt Date: 20050307
  Transmission Date: 20051028
  Serious: No
  Sender: FDA-Public Use
  Company Number: US-GLAXOSMITHKLINE-A0548616A

PATIENT
  Age: 65 Year
  Sex: Female

DRUGS (7)
  1. AVANDAMET [Suspect]
     Dosage: 1TAB TWICE PER DAY
     Route: 048
     Dates: end: 20050304
  2. AVANDIA [Suspect]
     Route: 048
  3. FUROSEMIDE [Concomitant]
  4. PROZAC [Concomitant]
  5. VYTORIN [Concomitant]
  6. ATENOLOL [Concomitant]
  7. BUFFERIN [Concomitant]

REACTIONS (3)
  - HEADACHE [None]
  - OEDEMA [None]
  - WEIGHT INCREASED [None]
